FAERS Safety Report 23109934 (Version 1)
Quarter: 2023Q4

REPORT INFORMATION
  Report Type: Report from Study
  Country: US (occurrence: US)
  Receive Date: 20231026
  Receipt Date: 20231026
  Transmission Date: 20240109
  Serious: Yes (Hospitalization)
  Sender: FDA-Public Use
  Company Number: US-INSMED, INC.-2023-01605-US

PATIENT
  Sex: Female

DRUGS (3)
  1. ARIKAYCE [Suspect]
     Active Substance: AMIKACIN
     Indication: Product used for unknown indication
     Dosage: 590 MILLIGRAM, QD
     Route: 055
     Dates: start: 20220830
  2. ARIKAYCE [Suspect]
     Active Substance: AMIKACIN
     Dosage: UNK, TIW
     Route: 055
     Dates: end: 2023
  3. AMIKACIN [Concomitant]
     Active Substance: AMIKACIN
     Indication: Product used for unknown indication
     Dosage: UNK
     Route: 042
     Dates: start: 202304, end: 2023

REACTIONS (3)
  - Hospitalisation [Unknown]
  - Therapy interrupted [Unknown]
  - Off label use [Unknown]
